FAERS Safety Report 9172981 (Version 1)
Quarter: 2013Q1

REPORT INFORMATION
  Report Type: Spontaneous
  Country: US (occurrence: None)
  Receive Date: 20130313
  Receipt Date: 20130313
  Transmission Date: 20140127
  Serious: Yes (Hospitalization)
  Sender: FDA-Public Use
  Company Number: PI-09028

PATIENT
  Age: 68 Year
  Sex: Female

DRUGS (1)
  1. CHLORAPREP [Suspect]
     Indication: INFECTION PROPHYLAXIS
     Dosage: 26ML, ONCE, TOPICAL
     Route: 061
     Dates: start: 20130107

REACTIONS (4)
  - Post procedural infection [None]
  - Staphylococcal infection [None]
  - Pathogen resistance [None]
  - Joint abscess [None]
